FAERS Safety Report 18486607 (Version 2)
Quarter: 2020Q4

REPORT INFORMATION
  Report Type: Spontaneous
  Country: US (occurrence: US)
  Receive Date: 20201110
  Receipt Date: 20201117
  Transmission Date: 20210114
  Serious: No
  Sender: FDA-Public Use
  Company Number: US-PFIZER INC-2018030649

PATIENT
  Age: 52 Year
  Sex: Female
  Weight: 90.72 kg

DRUGS (5)
  1. LYRICA [Suspect]
     Active Substance: PREGABALIN
     Indication: PAIN
  2. LYRICA [Suspect]
     Active Substance: PREGABALIN
     Indication: BACK PAIN
     Dosage: 75 MG, 3X/DAY
     Route: 048
  3. LYRICA [Suspect]
     Active Substance: PREGABALIN
     Indication: NEUROPATHY PERIPHERAL
  4. LYRICA [Suspect]
     Active Substance: PREGABALIN
     Indication: SENSORY NEUROPATHY HEREDITARY
  5. LYRICA [Suspect]
     Active Substance: PREGABALIN
     Indication: LUMBOSACRAL RADICULOPATHY
     Dosage: 100 MG, 3X/DAY (TAKE 1 CAPSULE 3 TIMES A DAY BY ORAL ROUTE FOR 90 DAYS)
     Route: 048

REACTIONS (2)
  - Drug ineffective [Unknown]
  - Language disorder [Recovering/Resolving]
